FAERS Safety Report 10302766 (Version 1)
Quarter: 2014Q3

REPORT INFORMATION
  Report Type: Spontaneous
  Country: US (occurrence: US)
  Receive Date: 20140714
  Receipt Date: 20140714
  Transmission Date: 20150326
  Serious: Yes (Other)
  Sender: FDA-Public Use
  Company Number: US-GLAXOSMITHKLINE-A1080580A

PATIENT
  Age: 70 Year
  Sex: Female

DRUGS (19)
  1. BABY ASPIRIN [Concomitant]
     Active Substance: ASPIRIN
  2. CLONIDINE. [Concomitant]
     Active Substance: CLONIDINE
  3. PROBIOTIC [Concomitant]
     Active Substance: PROBIOTICS NOS
  4. CEPHALEXIN. [Suspect]
     Active Substance: CEPHALEXIN
     Indication: PRODUCT USED FOR UNKNOWN INDICATION
     Route: 065
  5. CALCIUM CITRATE [Concomitant]
     Active Substance: CALCIUM CITRATE
  6. PREDNISOLONE ACETATE EYE DROPS [Suspect]
     Active Substance: PREDNISOLONE
     Indication: EYE OPERATION
     Route: 047
     Dates: start: 201404
  7. VALACYCLOVIR [Concomitant]
     Active Substance: VALACYCLOVIR HYDROCHLORIDE
  8. EXEMESTANE. [Concomitant]
     Active Substance: EXEMESTANE
  9. CENTRUM SILVER [Concomitant]
     Active Substance: VITAMINS
  10. MAGNESIUM [Concomitant]
     Active Substance: MAGNESIUM
  11. ALPRAZOLAM. [Concomitant]
     Active Substance: ALPRAZOLAM
  12. MONTELUKAST [Concomitant]
     Active Substance: MONTELUKAST SODIUM
  13. FISH OIL [Concomitant]
     Active Substance: FISH OIL
  14. OSTEO BI-FLEX [Concomitant]
     Active Substance: CHONDROITIN SULFATE A\GLUCOSAMINE
  15. AVELOX [Suspect]
     Active Substance: MOXIFLOXACIN HYDROCHLORIDE
     Indication: PRODUCT USED FOR UNKNOWN INDICATION
     Route: 065
  16. VITAMIN D3 [Concomitant]
     Active Substance: CHOLECALCIFEROL
  17. ADVAIR HFA [Suspect]
     Active Substance: FLUTICASONE PROPIONATE\SALMETEROL XINAFOATE
     Indication: ASTHMA
     Dosage: 1PUFF TWICE PER DAY
     Route: 055
  18. MICARDIS [Concomitant]
     Active Substance: TELMISARTAN
  19. VITAMIN B [Concomitant]
     Active Substance: VITAMIN B

REACTIONS (5)
  - Pain in extremity [Not Recovered/Not Resolved]
  - Pneumonia [Recovering/Resolving]
  - Breast cancer [Unknown]
  - Muscle spasms [Not Recovered/Not Resolved]
  - Drug hypersensitivity [Unknown]

NARRATIVE: CASE EVENT DATE: 2010
